FAERS Safety Report 7219583-1 (Version None)
Quarter: 2011Q1

REPORT INFORMATION
  Report Type: 
  Country: None (occurrence: None)
  Receive Date: 20110111
  Receipt Date: 20110110
  Transmission Date: 20110831
  Serious: Yes (Hospitalization, Other)
  Sender: FDA-Public Use
  Company Number: US-ABBOTT-11P-163-0695517-00

PATIENT
  Sex: Female
  Weight: 40.86 kg

DRUGS (5)
  1. NALTRAXONE [Concomitant]
     Indication: CROHN'S DISEASE
     Route: 048
  2. TOPROL-XL [Concomitant]
     Indication: HEART RATE INCREASED
     Route: 048
  3. SLOW FE [Concomitant]
     Indication: MINERAL SUPPLEMENTATION
     Route: 048
  4. NORTREL 7/7/7 [Concomitant]
     Indication: ORAL CONTRACEPTION
     Route: 048
  5. HUMIRA [Suspect]
     Indication: CROHN'S DISEASE
     Route: 058
     Dates: start: 20100601

REACTIONS (2)
  - INJECTION SITE PAIN [None]
  - NEPHROLITHIASIS [None]
